FAERS Safety Report 26001592 (Version 1)
Quarter: 2025Q4

REPORT INFORMATION
  Report Type: Spontaneous
  Country: CN (occurrence: CN)
  Receive Date: 20251105
  Receipt Date: 20251105
  Transmission Date: 20260117
  Serious: Yes (Other)
  Sender: DEVA
  Company Number: CN-DEVA-2025-CN-000199

PATIENT
  Age: 78 Year
  Sex: Female

DRUGS (1)
  1. SUCCINYLCHOLINE CHLORIDE [Suspect]
     Active Substance: SUCCINYLCHOLINE CHLORIDE
     Indication: Neuromuscular blocking therapy
     Dosage: 0.15 MG/KG

REACTIONS (2)
  - Respiratory failure [Unknown]
  - Cardiac failure [Unknown]
